FAERS Safety Report 17565771 (Version 2)
Quarter: 2020Q3

REPORT INFORMATION
  Report Type: Spontaneous
  Country: US (occurrence: US)
  Receive Date: 20200320
  Receipt Date: 20200715
  Transmission Date: 20201102
  Serious: No
  Sender: FDA-Public Use
  Company Number: US-ASTRAZENECA-2020SE28482

PATIENT
  Age: 52 Year
  Sex: Female

DRUGS (7)
  1. ASPIRIN. [Concomitant]
     Active Substance: ASPIRIN
  2. PRAVASTATIN. [Concomitant]
     Active Substance: PRAVASTATIN
  3. REPAGLINIDE. [Concomitant]
     Active Substance: REPAGLINIDE
  4. TELMISARTAN. [Concomitant]
     Active Substance: TELMISARTAN
  5. BYDUREON BCISE [Suspect]
     Active Substance: EXENATIDE
     Indication: TYPE 2 DIABETES MELLITUS
     Route: 065
  6. INSULIN GLARGINE [Concomitant]
     Active Substance: INSULIN GLARGINE
  7. VITAMIN D3 [Concomitant]
     Active Substance: CHOLECALCIFEROL

REACTIONS (2)
  - Eosinophilia [Recovered/Resolved]
  - Off label use [Recovered/Resolved]
